FAERS Safety Report 7146055-5 (Version None)
Quarter: 2010Q4

REPORT INFORMATION
  Report Type: 
  Country: None (occurrence: None)
  Receive Date: 20101208
  Receipt Date: 20100927
  Transmission Date: 20110411
  Serious: No
  Sender: FDA-Public Use
  Company Number: US-BAYER-201022358BCC

PATIENT
  Sex: Female
  Weight: 75 kg

DRUGS (2)
  1. ALEVE [Suspect]
     Dosage: UNK
     Route: 048
     Dates: start: 20100924
  2. SYNTHROID [Concomitant]

REACTIONS (1)
  - INSOMNIA [None]
